FAERS Safety Report 5932698-0 (Version None)
Quarter: 2008Q4

REPORT INFORMATION
  Report Type: 
  Country: None (occurrence: None)
  Receive Date: 20081023
  Receipt Date: 20081008
  Transmission Date: 20090506
  Serious: Yes (Death, Disabling)
  Sender: FDA-Public Use
  Company Number: 2008000491

PATIENT
  Age: 75 Year
  Sex: Male

DRUGS (11)
  1. ERLOTINIB (ERLOTINIB HCL) (ERLOTINIB HCL) [Suspect]
     Indication: LUNG ADENOCARCINOMA
     Dosage: (150 MG, QD), ORAL
     Route: 048
     Dates: start: 20080105, end: 20080218
  2. POLYFUL [Concomitant]
  3. EURODIN (ESTAZOLAM) [Concomitant]
  4. FAMOTIDINE [Concomitant]
  5. DAI-KENCHU-TO [Concomitant]
  6. DOMPERIDONE (DOMERIDONE) [Concomitant]
  7. GASMOTIN (MOSAPRIDE CITRATE) [Concomitant]
  8. MAGNESIUM OXIDE (MAGNESIUM OXIDE) [Concomitant]
  9. ZOLPIDEM TARTRATE [Concomitant]
  10. LASIX [Concomitant]
  11. ALDACTONE [Concomitant]

REACTIONS (13)
  - BLOOD BILIRUBIN INCREASED [None]
  - CATARACT [None]
  - HEPATIC FUNCTION ABNORMAL [None]
  - HERPES ZOSTER [None]
  - HYPOXIA [None]
  - LUNG ADENOCARCINOMA [None]
  - MALIGNANT NEOPLASM PROGRESSION [None]
  - METASTASES TO CENTRAL NERVOUS SYSTEM [None]
  - METASTASES TO LYMPH NODES [None]
  - NON-SMALL CELL LUNG CANCER [None]
  - PARONYCHIA [None]
  - PLATELET COUNT DECREASED [None]
  - RASH [None]
